FAERS Safety Report 4361154-9 (Version None)
Quarter: 2004Q2

REPORT INFORMATION
  Report Type: 
  Country: None (occurrence: None)
  Receive Date: 20040511
  Receipt Date: 20031003
  Transmission Date: 20050107
  Serious: Yes (Hospitalization)
  Sender: FDA-Public Use
  Company Number: USA030845468

PATIENT
  Age: 54 Year
  Sex: Female

DRUGS (5)
  1. PROZAC [Suspect]
     Indication: MAJOR DEPRESSION
     Dosage: 40 MG/DAY
     Dates: start: 20000101
  2. TRAZODONE HCL [Concomitant]
  3. EFFEXOR XR [Concomitant]
  4. ATIVAN [Concomitant]
  5. BLOOD PRESSURE [Concomitant]

REACTIONS (1)
  - SUICIDAL IDEATION [None]
